FAERS Safety Report 17831131 (Version 1)
Quarter: 2020Q2

REPORT INFORMATION
  Report Type: Spontaneous
  Country: ES (occurrence: ES)
  Receive Date: 20200527
  Receipt Date: 20200527
  Transmission Date: 20200714
  Serious: Yes (Hospitalization)
  Sender: FDA-Public Use
  Company Number: ES-TEVA-2020-ES-1239480

PATIENT
  Age: 83 Year
  Sex: Male

DRUGS (1)
  1. ENALAPRIL/HIDROCLOROTIAZIDA RATIOPHARM 20 MG/ 12, 5 MG COMPRIMIDOS EFG [Suspect]
     Active Substance: ENALAPRIL MALEATE\HYDROCHLOROTHIAZIDE
     Indication: HYPERTENSION
     Dosage: 1C/24H, 1 DOSAGE FORMS
     Route: 048
     Dates: start: 20130227, end: 20191021

REACTIONS (1)
  - Hyponatraemia [Recovered/Resolved]

NARRATIVE: CASE EVENT DATE: 20191008
